FAERS Safety Report 15036940 (Version 2)
Quarter: 2018Q3

REPORT INFORMATION
  Report Type: Spontaneous
  Country: US (occurrence: US)
  Receive Date: 20180620
  Receipt Date: 20180813
  Transmission Date: 20181010
  Serious: Yes (Hospitalization)
  Sender: FDA-Public Use
  Company Number: US-BEH-2018091812

PATIENT
  Age: 58 Year
  Sex: Female

DRUGS (2)
  1. PRIVIGEN [Suspect]
     Active Substance: HUMAN IMMUNOGLOBULIN G
     Indication: ILL-DEFINED DISORDER
  2. PRIVIGEN [Suspect]
     Active Substance: HUMAN IMMUNOGLOBULIN G
     Indication: PULMONARY FIBROSIS
     Dosage: 50 G, DAILY FOR 3 DAYS EVERY 4 WEEKS
     Route: 042
     Dates: start: 20180511

REACTIONS (2)
  - Pulmonary hypertension [Unknown]
  - Lung transplant [Unknown]

NARRATIVE: CASE EVENT DATE: 2018
